FAERS Safety Report 5269917-2 (Version None)
Quarter: 2007Q1

REPORT INFORMATION
  Report Type: 
  Country: None (occurrence: None)
  Receive Date: 20070314
  Receipt Date: 20070226
  Transmission Date: 20070707
  Serious: Yes (Other)
  Sender: FDA-Public Use
  Company Number: 012835

PATIENT
  Age: 35 Year
  Sex: Female

DRUGS (8)
  1. PRIALT [Suspect]
     Indication: BACK PAIN
     Dosage: UG, ONCE/HOUR, INTRATHECAL
     Route: 037
     Dates: start: 20070124, end: 20070221
  2. ATENOLOL [Concomitant]
  3. LYRICA [Concomitant]
  4. OXYCODONE HCL [Concomitant]
  5. OXYCONTIN [Concomitant]
  6. TOPAMAX [Concomitant]
  7. TRAZODONE HCL [Concomitant]
  8. VALIUM /00017001/ (DIAZEPAM) [Concomitant]

REACTIONS (2)
  - BLOOD CREATINE PHOSPHOKINASE INCREASED [None]
  - MYALGIA [None]
